FAERS Safety Report 19949367 (Version 1)
Quarter: 2021Q4

REPORT INFORMATION
  Report Type: Spontaneous
  Country: US (occurrence: US)
  Receive Date: 20211012
  Receipt Date: 20211012
  Transmission Date: 20220304
  Serious: Yes (Life-Threatening, Disabling, Other)
  Sender: FDA-Public Use
  Company Number: None

PATIENT
  Age: 31 Year
  Sex: Female
  Weight: 83.25 kg

DRUGS (1)
  1. AMOXICILLIN [Suspect]
     Active Substance: AMOXICILLIN
     Indication: Dental cleaning
     Dosage: ?          QUANTITY:10 TABLET(S);
     Route: 048
     Dates: start: 20210215, end: 20210219

REACTIONS (2)
  - Clostridium difficile infection [None]
  - Product contamination microbial [None]

NARRATIVE: CASE EVENT DATE: 20210227
